FAERS Safety Report 8281280-1 (Version None)
Quarter: 2012Q2

REPORT INFORMATION
  Report Type: 
  Country: None (occurrence: None)
  Receive Date: 20120410
  Receipt Date: 20120410
  Transmission Date: 20120825
  Serious: No
  Sender: FDA-Public Use
  Company Number: None

PATIENT

DRUGS (1)
  1. FENTANYL [Suspect]
     Dosage: PATCH
     Route: 061

REACTIONS (3)
  - PAIN [None]
  - MEDICATION ERROR [None]
  - CONDITION AGGRAVATED [None]
